FAERS Safety Report 16956344 (Version 1)
Quarter: 2019Q4

REPORT INFORMATION
  Report Type: Spontaneous
  Country: US (occurrence: US)
  Receive Date: 20190905
  Receipt Date: 20190905
  Transmission Date: 20200122
  Serious: No
  Sender: FDA-Public Use
  Company Number: None

PATIENT
  Sex: Female

DRUGS (11)
  1. ZANTAC [Concomitant]
     Active Substance: RANITIDINE HYDROCHLORIDE
  2. MULTI-VITAMIN W/MINERALS [Concomitant]
  3. ZINC SULFATE. [Concomitant]
     Active Substance: ZINC SULFATE
  4. GABAPENTIN. [Concomitant]
     Active Substance: GABAPENTIN
  5. BIOTIN [Concomitant]
     Active Substance: BIOTIN
  6. CHLORHENIR [Concomitant]
  7. BYSTOLIC [Concomitant]
     Active Substance: NEBIVOLOL HYDROCHLORIDE
  8. CALCIUM [Concomitant]
     Active Substance: CALCIUM
  9. FORTEO [Suspect]
     Active Substance: TERIPARATIDE
     Indication: PSORIASIS
     Route: 058
     Dates: start: 20180220
  10. COSENTYX [Concomitant]
     Active Substance: SECUKINUMAB
  11. FISH OIL [Concomitant]
     Active Substance: FISH OIL

REACTIONS (2)
  - Psoriasis [None]
  - Middle ear effusion [None]

NARRATIVE: CASE EVENT DATE: 20190903
